FAERS Safety Report 6066313-5 (Version None)
Quarter: 2009Q1

REPORT INFORMATION
  Report Type: 
  Country: None (occurrence: None)
  Receive Date: 20090203
  Receipt Date: 20090120
  Transmission Date: 20090719
  Serious: Yes (Death)
  Sender: FDA-Public Use
  Company Number: 230665K09USA

PATIENT
  Age: 60 Year
  Sex: Male

DRUGS (1)
  1. REBIF [Suspect]
     Indication: MULTIPLE SCLEROSIS
     Dosage: 22 MCG, 3 IN 1 WEEKS, SUBCUTANEOUS
     Route: 058
     Dates: start: 20030701, end: 20081001

REACTIONS (3)
  - DISEASE COMPLICATION [None]
  - GASTRIC DISORDER [None]
  - MULTIPLE SCLEROSIS [None]
